FAERS Safety Report 19574701 (Version 1)
Quarter: 2021Q3

REPORT INFORMATION
  Report Type: Spontaneous
  Country: CH (occurrence: CH)
  Receive Date: 20210719
  Receipt Date: 20210719
  Transmission Date: 20211014
  Serious: Yes (Other)
  Sender: FDA-Public Use
  Company Number: CH-ADVANZ PHARMA-202107005127

PATIENT

DRUGS (1)
  1. ALFUZOSIN [Suspect]
     Active Substance: ALFUZOSIN
     Indication: BLADDER DYSFUNCTION
     Dosage: 0.25 DOSAGE FORM, QD (1/ 4 DOSE FORM; FILM?COATED TABLET, XATRAL)
     Route: 065
     Dates: start: 202106

REACTIONS (3)
  - Cough [Unknown]
  - Rhinorrhoea [Unknown]
  - Off label use [Unknown]

NARRATIVE: CASE EVENT DATE: 2021
